FAERS Safety Report 9349742 (Version 1)
Quarter: 2013Q2

REPORT INFORMATION
  Report Type: Spontaneous
  Country: US (occurrence: US)
  Receive Date: 20130614
  Receipt Date: 20130614
  Transmission Date: 20140414
  Serious: Yes (Other)
  Sender: FDA-Public Use
  Company Number: US-BAYER-2013-073448

PATIENT
  Age: 77 Year
  Sex: Male
  Weight: 83.45 kg

DRUGS (13)
  1. ALEVE CAPLET [Suspect]
     Dosage: 1 DF, TID
     Route: 048
     Dates: end: 201305
  2. BAYER ASPIRIN [Concomitant]
  3. PLAVIX [Concomitant]
  4. AMITRIPTYLINE [Concomitant]
  5. TYLENOL [PARACETAMOL] [Concomitant]
     Dosage: 2 DF, TID
  6. CREON [AMYLASE,LIPASE,PANCREATIN,PROTEASE] [Concomitant]
  7. METFORMIN [Concomitant]
  8. GABAPENTIN [Concomitant]
  9. GLUCOSAMINE [Concomitant]
  10. NITROGLYCERIN [Concomitant]
  11. LACTAID [Concomitant]
  12. CHONDROITIN [Concomitant]
  13. GEMFIBROZIL [Concomitant]

REACTIONS (3)
  - Rectal haemorrhage [Recovered/Resolved]
  - Epistaxis [Recovering/Resolving]
  - Incorrect drug administration duration [None]
